FAERS Safety Report 21577874 (Version 1)
Quarter: 2022Q4

REPORT INFORMATION
  Report Type: Spontaneous
  Country: None (occurrence: LU)
  Receive Date: 20221110
  Receipt Date: 20221110
  Transmission Date: 20230113
  Serious: Yes (Hospitalization)
  Sender: FDA-Public Use
  Company Number: LU-ALMPS-202203870

PATIENT
  Weight: 3.2 kg

DRUGS (4)
  1. NITROUS OXIDE [Suspect]
     Active Substance: NITROUS OXIDE
     Indication: General anaesthesia
     Route: 055
  2. MARCAINE [Suspect]
     Active Substance: BUPIVACAINE HYDROCHLORIDE
     Route: 037
  3. SEVOFLURANE [Suspect]
     Active Substance: SEVOFLURANE
     Route: 055
  4. MIVACRON [Suspect]
     Active Substance: MIVACURIUM CHLORIDE
     Route: 037

REACTIONS (2)
  - Acute kidney injury [Unknown]
  - Hypoxia [Unknown]
